FAERS Safety Report 16847149 (Version 1)
Quarter: 2019Q3

REPORT INFORMATION
  Report Type: Report from Study
  Country: US (occurrence: US)
  Receive Date: 20190924
  Receipt Date: 20190924
  Transmission Date: 20191005
  Serious: Yes (Death)
  Sender: FDA-Public Use
  Company Number: US-TEVA-2019-US-1112311

PATIENT

DRUGS (7)
  1. MESNA. [Suspect]
     Active Substance: MESNA
     Indication: PLASMA CELL LEUKAEMIA
     Dosage: ON DAYS 1-4; MCBAD REGIMEN
     Route: 042
  2. DOXORUBICIN [Suspect]
     Active Substance: DOXORUBICIN
     Indication: PLASMA CELL LEUKAEMIA
     Dosage: ON DAYS 1-4; MCBAD REGIMEN; CONTINUOUS INFUSION
     Route: 041
  3. CYCLOPHOSPHAMIDE. [Suspect]
     Active Substance: CYCLOPHOSPHAMIDE
     Indication: PLASMA CELL LEUKAEMIA
     Dosage: ON DAYS 1-4; MCBAD REGIMEN
     Route: 042
  4. DEXAMETHASONE. [Suspect]
     Active Substance: DEXAMETHASONE
     Indication: PLASMA CELL LEUKAEMIA
     Dosage: ON ON DAYS 1-4, 9-12, AND 17-20; MCBAD REGIMEN
     Route: 048
  5. VALACYCLOVIR [Concomitant]
     Active Substance: VALACYCLOVIR HYDROCHLORIDE
     Indication: ANTIVIRAL PROPHYLAXIS
     Route: 065
  6. ACYCLOVIR. [Concomitant]
     Active Substance: ACYCLOVIR
     Indication: ANTIVIRAL PROPHYLAXIS
     Route: 065
  7. BORTEZOMIB. [Suspect]
     Active Substance: BORTEZOMIB
     Indication: PLASMA CELL LEUKAEMIA
     Dosage: ON DAYS 1, 4, 8, AND 11; MCBAD REGIMEN
     Route: 065

REACTIONS (1)
  - Respiratory failure [Fatal]
